FAERS Safety Report 7346019-2 (Version None)
Quarter: 2011Q1

REPORT INFORMATION
  Report Type: 
  Country: None (occurrence: None)
  Receive Date: 20110308
  Receipt Date: 20110308
  Transmission Date: 20110831
  Serious: Yes (Hospitalization)
  Sender: FDA-Public Use
  Company Number: None

PATIENT
  Age: 43 Year
  Sex: Female
  Weight: 99.1 kg

DRUGS (2)
  1. IOHEXOL [Suspect]
     Indication: COMPUTERISED TOMOGRAM
     Dosage: 130 ML ONCE IV
     Route: 042
     Dates: start: 20110303, end: 20110303
  2. IOHEXOL [Suspect]
     Indication: ABDOMINAL PAIN
     Dosage: 130 ML ONCE IV
     Route: 042
     Dates: start: 20110303, end: 20110303

REACTIONS (4)
  - DYSPNOEA [None]
  - ANAPHYLACTIC REACTION [None]
  - DYSPHONIA [None]
  - DYSPHAGIA [None]
